FAERS Safety Report 8492841-9 (Version None)
Quarter: 2012Q3

REPORT INFORMATION
  Report Type: 
  Country: None (occurrence: None)
  Receive Date: 20120706
  Receipt Date: 20120626
  Transmission Date: 20120928
  Serious: Yes (Hospitalization)
  Sender: FDA-Public Use
  Company Number: IT-BRISTOL-MYERS SQUIBB COMPANY-15398449

PATIENT
  Sex: Male
  Weight: 92 kg

DRUGS (1)
  1. COUMADIN [Suspect]
     Indication: ANTICOAGULANT THERAPY
     Dosage: DURATION OF THERAPY:27 YRS VARIABLE DOSAGES
     Dates: start: 19830101

REACTIONS (4)
  - SPINAL OSTEOARTHRITIS [None]
  - OSTEOARTHRITIS [None]
  - OSTEOPOROTIC FRACTURE [None]
  - OSTEOPOROSIS [None]
